FAERS Safety Report 4420450-7 (Version None)
Quarter: 2004Q3

REPORT INFORMATION
  Report Type: 
  Country: None (occurrence: None)
  Receive Date: 20040809
  Receipt Date: 20040303
  Transmission Date: 20050211
  Serious: Yes (Disabling, Other)
  Sender: FDA-Public Use
  Company Number: US-GLAXOSMITHKLINE-A0501032A

PATIENT
  Age: 37 Year
  Sex: Male
  Weight: 90.9 kg

DRUGS (4)
  1. PAXIL CR [Suspect]
     Indication: ILL-DEFINED DISORDER
     Dosage: 37.5MG PER DAY
     Route: 048
     Dates: end: 20040203
  2. GLUCOSAMINE/CHONDROITIN [Concomitant]
  3. ALLEGRA [Concomitant]
  4. ALLEGRA-D [Concomitant]

REACTIONS (6)
  - DIZZINESS [None]
  - DRUG WITHDRAWAL SYNDROME [None]
  - HEADACHE [None]
  - NAUSEA [None]
  - TINNITUS [None]
  - VERTIGO [None]
